FAERS Safety Report 17712845 (Version 2)
Quarter: 2020Q3

REPORT INFORMATION
  Report Type: Spontaneous
  Country: DE (occurrence: DE)
  Receive Date: 20200427
  Receipt Date: 20200729
  Transmission Date: 20201102
  Serious: Yes (Other)
  Sender: FDA-Public Use
  Company Number: DE-ANIPHARMA-2020-DE-000077

PATIENT
  Sex: Male
  Weight: 130 kg

DRUGS (13)
  1. MILNACIPRAN HYDROCHLORIDE. [Concomitant]
     Active Substance: MILNACIPRAN HYDROCHLORIDE
     Dosage: 50 MG UNK
     Route: 065
  2. VALSARTAN. [Suspect]
     Active Substance: VALSARTAN
     Dosage: 80 MG QD
     Route: 065
     Dates: start: 201710, end: 201801
  3. ALLOPURINOL. [Concomitant]
     Active Substance: ALLOPURINOL
     Dosage: UNKNOWN DOSE, EVERY DAY
     Route: 065
  4. RIVAROXABAN [Concomitant]
     Active Substance: RIVAROXABAN
     Dosage: UNKNOWN DOSE, EVERY DAY
     Route: 065
  5. CANDESARTAN. [Suspect]
     Active Substance: CANDESARTAN
     Indication: PRODUCT USED FOR UNKNOWN INDICATION
     Dosage: DOSE TEXT: UNK / DOSE TEXT: UNK
     Route: 065
     Dates: start: 201905, end: 201911
  6. VALSARTAN. [Suspect]
     Active Substance: VALSARTAN
     Dosage: 80 MG QD / 80 MG QD / 80 MG QD
     Route: 065
     Dates: start: 201902, end: 201905
  7. METFORMIN HYDROCHLORIDE. [Concomitant]
     Active Substance: METFORMIN HYDROCHLORIDE
     Dosage: UNKNOWN DOSE, TWO TIMES A DAY
     Route: 065
  8. PROMETHAZINE [Concomitant]
     Active Substance: PROMETHAZINE HYDROCHLORIDE
     Dosage: 25 MG UNK
     Route: 065
  9. CANDESARTAN CILEXETIL. [Suspect]
     Active Substance: CANDESARTAN CILEXETIL
     Dosage: UNK
     Route: 065
     Dates: start: 201911
  10. PANTOPRAZOL [Concomitant]
     Active Substance: PANTOPRAZOLE SODIUM
     Dosage: UNK
     Route: 065
  11. ATORVASTATIN [Concomitant]
     Active Substance: ATORVASTATIN
     Dosage: UNK
     Route: 065
  12. LEVOTHYROXINE NA [Concomitant]
     Active Substance: LEVOTHYROXINE SODIUM
     Dosage: UNKNOWN DOSE, EVERY DAY
     Route: 065
  13. METAMIZOL NATRIUM [Concomitant]
     Active Substance: METAMIZOLE SODIUM
     Dosage: UNK
     Route: 065

REACTIONS (20)
  - Atrial fibrillation [Unknown]
  - Disturbance in attention [Unknown]
  - Panic attack [Unknown]
  - Restlessness [Unknown]
  - Cerebrovascular accident [Unknown]
  - Hyperhidrosis [Unknown]
  - Depression [Unknown]
  - Chest pain [Unknown]
  - Tremor [Unknown]
  - Fatigue [Unknown]
  - Mental impairment [Unknown]
  - Fear of disease [Unknown]
  - Chest discomfort [Unknown]
  - Nausea [Unknown]
  - Dizziness [Unknown]
  - Loss of personal independence in daily activities [Unknown]
  - Nervousness [Unknown]
  - Insomnia [Unknown]
  - Vomiting [Unknown]
  - Gastrointestinal disorder [Unknown]

NARRATIVE: CASE EVENT DATE: 2018
